FAERS Safety Report 7050646-X (Version None)
Quarter: 2010Q4

REPORT INFORMATION
  Report Type: 
  Country: None (occurrence: None)
  Receive Date: 20101018
  Receipt Date: 20101013
  Transmission Date: 20110411
  Serious: Yes (Hospitalization)
  Sender: FDA-Public Use
  Company Number: GB-MERCK-0907GBR00043

PATIENT
  Age: 72 Year
  Sex: Female

DRUGS (10)
  1. TRUSOPT [Suspect]
     Indication: GLAUCOMA
     Route: 047
     Dates: start: 20090301, end: 20090601
  2. TRUSOPT [Suspect]
     Route: 047
     Dates: start: 20000301, end: 20001201
  3. BIMATOPROST [Concomitant]
     Indication: GLAUCOMA
     Route: 047
     Dates: start: 20090701
  4. BIMATOPROST AND TIMOLOL MALEATE [Concomitant]
     Route: 047
     Dates: start: 20090301
  5. SULFASALAZINE [Concomitant]
     Route: 065
     Dates: start: 20010101
  6. NAPROXEN [Concomitant]
     Indication: RHEUMATOID ARTHRITIS
     Route: 065
  7. PENICILLAMINE [Concomitant]
     Indication: RHEUMATOID ARTHRITIS
     Route: 065
  8. LATANOPROST [Concomitant]
     Route: 065
     Dates: start: 20020201
  9. DORZOLAMIDE HCL AND TIMOLOL MALEATE [Suspect]
     Route: 047
     Dates: start: 20001201, end: 20090301
  10. DORZOLAMIDE HCL AND TIMOLOL MALEATE [Suspect]
     Route: 047
     Dates: start: 20090701

REACTIONS (7)
  - HEADACHE [None]
  - HYPERTENSION [None]
  - LIMB OPERATION [None]
  - MIGRAINE [None]
  - NAUSEA [None]
  - OVERDOSE [None]
  - STRESS [None]
